FAERS Safety Report 4355637-5 (Version None)
Quarter: 2004Q2

REPORT INFORMATION
  Report Type: 
  Country: None (occurrence: None)
  Receive Date: 20040505
  Receipt Date: 20040423
  Transmission Date: 20050107
  Serious: Yes (Death)
  Sender: FDA-Public Use
  Company Number: US-JNJFOC-20040205284

PATIENT
  Age: 86 Year
  Sex: Male
  Weight: 58.514 kg

DRUGS (3)
  1. REMINYL [Suspect]
     Dosage: 5-10MG DAILY
     Dates: start: 20020101
  2. BETA BLOCKER (BETA BLOCKING AGENTS) UNSPECIFIED [Concomitant]
  3. DIURETIC (DIURETICS) UNSPECIFIED [Concomitant]

REACTIONS (1)
  - REFUSAL OF TREATMENT BY PATIENT [None]
